FAERS Safety Report 23020206 (Version 1)
Quarter: 2023Q4

REPORT INFORMATION
  Report Type: Spontaneous
  Country: US (occurrence: US)
  Receive Date: 20231003
  Receipt Date: 20231003
  Transmission Date: 20240109
  Serious: No
  Sender: FDA-Public Use
  Company Number: US-BAYER-2023A137354

PATIENT
  Age: 72 Year
  Sex: Female

DRUGS (1)
  1. GADAVIST [Suspect]
     Active Substance: GADOBUTROL
     Indication: Magnetic resonance imaging
     Dosage: 10 ML, ONCE
     Dates: start: 20230905, end: 20230905

REACTIONS (1)
  - Urticaria [None]

NARRATIVE: CASE EVENT DATE: 20230905
